FAERS Safety Report 13099662 (Version 2)
Quarter: 2017Q1

REPORT INFORMATION
  Report Type: Spontaneous
  Country: US (occurrence: US)
  Receive Date: 20170110
  Receipt Date: 20170127
  Transmission Date: 20170428
  Serious: Yes (Hospitalization)
  Sender: FDA-Public Use
  Company Number: GXBR2017US000446

PATIENT
  Age: 86 Year
  Sex: Female
  Weight: 81.63 kg

DRUGS (8)
  1. BABY ASPIRIN [Concomitant]
     Active Substance: ASPIRIN
     Indication: PRODUCT USED FOR UNKNOWN INDICATION
     Route: 065
  2. NEXIUM [Concomitant]
     Active Substance: ESOMEPRAZOLE MAGNESIUM
     Indication: PRODUCT USED FOR UNKNOWN INDICATION
     Dosage: 40 MG, QD
     Route: 065
  3. MIDODRINE HYDROCHLORIDE TABLETS [Suspect]
     Active Substance: MIDODRINE HYDROCHLORIDE
     Dosage: 2 OF THE 5MG TABLETS, TID
     Route: 048
     Dates: start: 20161017, end: 20161207
  4. MIDODRINE HYDROCHLORIDE TABLETS [Suspect]
     Active Substance: MIDODRINE HYDROCHLORIDE
     Dosage: 2 OF THE 5MG TABLETS, TID
     Route: 048
     Dates: start: 20161214
  5. MIDODRINE HYDROCHLORIDE TABLETS [Suspect]
     Active Substance: MIDODRINE HYDROCHLORIDE
     Indication: HYPOTENSION
     Dosage: 5 MG, TID
     Route: 048
     Dates: start: 20161012, end: 20161017
  6. MIDODRINE HYDROCHLORIDE TABLETS [Suspect]
     Active Substance: MIDODRINE HYDROCHLORIDE
     Dosage: 10 MG, TID
     Route: 048
     Dates: start: 20161207, end: 20161214
  7. ARMOUR THYROID [Concomitant]
     Active Substance: THYROID, PORCINE
     Indication: THYROID DISORDER
     Dosage: 160 MG, UNK
     Route: 065
  8. ALBUTEROL. [Concomitant]
     Active Substance: ALBUTEROL
     Indication: CHRONIC OBSTRUCTIVE PULMONARY DISEASE
     Route: 055

REACTIONS (2)
  - Joint injury [Unknown]
  - Headache [Recovered/Resolved]

NARRATIVE: CASE EVENT DATE: 201610
